FAERS Safety Report 7961519-X (Version None)
Quarter: 2011Q4

REPORT INFORMATION
  Report Type: 
  Country: None (occurrence: None)
  Receive Date: 20111202
  Receipt Date: 20110819
  Transmission Date: 20120403
  Serious: Yes (Disabling, Other)
  Sender: FDA-Public Use
  Company Number: 2011MA012302

PATIENT
  Age: 49 Year
  Sex: Male

DRUGS (15)
  1. ALLOPURINOL [Concomitant]
  2. ACETAMINOPHEN [Concomitant]
  3. TRAMADOL HYDROCHLORIDE [Suspect]
     Indication: PAIN
     Dosage: 100 MG;QD;PO
     Route: 048
     Dates: start: 20110720, end: 20110804
  4. LISINOPRIL [Concomitant]
  5. ASCORBIC ACID [Concomitant]
  6. LINEZOLID [Suspect]
     Dosage: 600 MG;BID;IV
     Route: 042
     Dates: start: 20110728, end: 20110805
  7. METRONIDAZOLE [Concomitant]
  8. MOVIPREP [Concomitant]
  9. ATENOLOL [Concomitant]
  10. SIMVASTATNI [Concomitant]
  11. ZINC [Concomitant]
  12. GENTAMICIN [Concomitant]
  13. VANCOMYCIN [Concomitant]
  14. OMEPRAZOLE [Concomitant]
  15. SENNA [Concomitant]

REACTIONS (9)
  - PANCYTOPENIA [None]
  - JOINT ARTHROPLASTY [None]
  - HALLUCINATIONS, MIXED [None]
  - AGGRESSION [None]
  - INFECTION [None]
  - ANAEMIA [None]
  - PARANOIA [None]
  - PSYCHOTIC DISORDER [None]
  - THROMBOCYTOPENIA [None]
